FAERS Safety Report 8827885 (Version 2)
Quarter: 2013Q1

REPORT INFORMATION
  Report Type: Report from Study
  Country: US (occurrence: US)
  Receive Date: 20121005
  Receipt Date: 20130131
  Transmission Date: 20140127
  Serious: No
  Sender: FDA-Public Use
  Company Number: US-VERTEX PHARMACEUTICAL INC.-2012-021373

PATIENT
  Sex: Female
  Weight: 82 kg

DRUGS (5)
  1. VX-950 (TELAPREVIR) [Suspect]
     Indication: HEPATITIS C
     Dosage: 750 MG, TID
     Route: 048
     Dates: start: 20120901
  2. PEGASYS [Suspect]
     Indication: HEPATITIS C
     Dosage: 180 ?G, QW
     Route: 058
     Dates: start: 20120901
  3. RIBAPAK [Suspect]
     Indication: HEPATITIS C
     Dosage: 600 MG, BID
     Route: 048
     Dates: start: 20120901
  4. WELCHOL [Concomitant]
     Dosage: UNK, QD
     Route: 048
  5. COQ-10 AND FISH OIL [Concomitant]
     Dosage: 1 SOFT GEL, QD
     Route: 048

REACTIONS (4)
  - Weight decreased [Unknown]
  - Decreased appetite [Unknown]
  - Alopecia [Unknown]
  - Fatigue [Unknown]
